FAERS Safety Report 16816542 (Version 1)
Quarter: 2019Q3

REPORT INFORMATION
  Report Type: Spontaneous
  Country: GB (occurrence: GB)
  Receive Date: 20190917
  Receipt Date: 20190917
  Transmission Date: 20191005
  Serious: Yes (Other)
  Sender: FDA-Public Use
  Company Number: GB-TEVA-2019-GB-1106990

PATIENT
  Age: 33 Year
  Sex: Female
  Weight: 65 kg

DRUGS (11)
  1. LACTULOSE. [Concomitant]
     Active Substance: LACTULOSE
     Dosage: 15 ML
     Dates: start: 20190621, end: 20190628
  2. AMOXICILLIN. [Concomitant]
     Active Substance: AMOXICILLIN
     Dosage: 1 DF
     Dates: start: 20190529, end: 20190606
  3. SERTRALINE [Concomitant]
     Active Substance: SERTRALINE HYDROCHLORIDE
     Dosage: 2 DF
     Dates: start: 20190302
  4. PROPRANOLOL [Suspect]
     Active Substance: PROPRANOLOL HYDROCHLORIDE
     Dosage: 40 MG
     Dates: start: 20190608
  5. CASSIA [Concomitant]
     Dosage: 1-2
     Dates: start: 20190320
  6. AMITRIPTYLINE HYDROCHLORIDE. [Concomitant]
     Active Substance: AMITRIPTYLINE HYDROCHLORIDE
     Dosage: 2 DF
     Dates: start: 20190405
  7. HYDROCORTISONE. [Concomitant]
     Active Substance: HYDROCORTISONE
     Dosage: APPLY THINLY FOR 2 NO MORE THAN WEEKS TWICE DAILY TO ANT
     Dates: start: 20190718, end: 20190801
  8. FUCIBET [Concomitant]
     Dosage: APPLY, 2 DF
     Dates: start: 20190522, end: 20190619
  9. KETOCONAZOLE. [Concomitant]
     Active Substance: KETOCONAZOLE
     Dosage: USE ALL OVER FOR 5 DAYS, 1 DF
     Dates: start: 20190522, end: 20190529
  10. QUETIAPINE. [Concomitant]
     Active Substance: QUETIAPINE
     Dosage: 1 DF
     Dates: start: 20190527
  11. E45 [Concomitant]
     Active Substance: LANOLIN\LIGHT MINERAL OIL\PARAFFIN
     Dosage: APPLY, 2 DF
     Dates: start: 20190628, end: 20190726

REACTIONS (1)
  - Wheezing [Recovered/Resolved]

NARRATIVE: CASE EVENT DATE: 20190718
